FAERS Safety Report 11692842 (Version 1)
Quarter: 2015Q4

REPORT INFORMATION
  Report Type: Spontaneous
  Country: US (occurrence: US)
  Receive Date: 20151103
  Receipt Date: 20151103
  Transmission Date: 20160304
  Serious: Yes (Hospitalization)
  Sender: FDA-Public Use
  Company Number: US-ASTELLAS-2015US040496

PATIENT
  Sex: Male

DRUGS (1)
  1. PROGRAF [Suspect]
     Active Substance: TACROLIMUS\TACROLIMUS ANHYDROUS
     Indication: PROPHYLAXIS AGAINST TRANSPLANT REJECTION
     Dosage: 4 MG, TWICE DAILY BY MOUTH
     Route: 048
     Dates: start: 20060420

REACTIONS (3)
  - Pneumonia [Unknown]
  - Pleurisy [Unknown]
  - Dehydration [Unknown]

NARRATIVE: CASE EVENT DATE: 2015
